FAERS Safety Report 4686034-0 (Version None)
Quarter: 2005Q2

REPORT INFORMATION
  Report Type: 
  Country: None (occurrence: None)
  Receive Date: 20050609
  Receipt Date: 20050601
  Transmission Date: 20051028
  Serious: Yes (Hospitalization)
  Sender: FDA-Public Use
  Company Number: US-JNJFOC-20050601372

PATIENT
  Sex: Female
  Weight: 113.4 kg

DRUGS (2)
  1. DURAGESIC-100 [Suspect]
     Route: 062
  2. DURAGESIC-100 [Suspect]
     Route: 062

REACTIONS (3)
  - FALL [None]
  - FIBULA FRACTURE [None]
  - TIBIA FRACTURE [None]
